FAERS Safety Report 9076319 (Version 1)
Quarter: 2013Q1

REPORT INFORMATION
  Report Type: Report from Study
  Country: US (occurrence: US)
  Receive Date: 20130129
  Receipt Date: 20130129
  Transmission Date: 20140127
  Serious: No
  Sender: FDA-Public Use
  Company Number: US-ABBOTT-12P-163-0950378-00

PATIENT
  Age: 60 Year
  Sex: Female

DRUGS (6)
  1. HUMIRA 40 MG/0.8 ML PEN [Suspect]
     Indication: CROHN^S DISEASE
     Dates: start: 20120323
  2. DIOVAN [Suspect]
     Indication: HYPERTENSION
     Dosage: DAILY
  3. AZATHIOPRINE [Concomitant]
     Indication: CROHN^S DISEASE
  4. ASACOL [Concomitant]
     Indication: CROHN^S DISEASE
     Dosage: 3 TABS 2X DAILY
  5. OMEPRAZOLE [Concomitant]
     Indication: GASTROOESOPHAGEAL REFLUX DISEASE
  6. SERTRALINE HCL [Concomitant]
     Indication: DEPRESSION

REACTIONS (4)
  - Rash pruritic [Not Recovered/Not Resolved]
  - Rash papular [Not Recovered/Not Resolved]
  - Dermatitis contact [Not Recovered/Not Resolved]
  - Dermatitis contact [Not Recovered/Not Resolved]
